FAERS Safety Report 4428820-8 (Version None)
Quarter: 2004Q3

REPORT INFORMATION
  Report Type: 
  Country: None (occurrence: None)
  Receive Date: 20040816
  Receipt Date: 20040812
  Transmission Date: 20050211
  Serious: Yes (Other)
  Sender: FDA-Public Use
  Company Number: 002353

PATIENT
  Age: 30 Year
  Sex: Female
  Weight: 63.5 kg

DRUGS (3)
  1. PLAN B [Suspect]
     Indication: POST COITAL CONTRACEPTION
     Dosage: 1.00 TABLET, Q12HR, ORAL
     Route: 048
     Dates: start: 20040619, end: 20040620
  2. EFFEXOR [Concomitant]
  3. TRILAFON [Concomitant]

REACTIONS (6)
  - ABORTION SPONTANEOUS [None]
  - DRUG EXPOSURE DURING PREGNANCY [None]
  - MENORRHAGIA [None]
  - METRORRHAGIA [None]
  - PELVIC PAIN [None]
  - UNINTENDED PREGNANCY [None]
